FAERS Safety Report 26052070 (Version 3)
Quarter: 2025Q4

REPORT INFORMATION
  Report Type: Report from Study
  Country: US (occurrence: US)
  Receive Date: 20251117
  Receipt Date: 20251202
  Transmission Date: 20260118
  Serious: No
  Sender: AMGEN
  Company Number: US-AMGEN-USASL2025222973

PATIENT
  Age: 58 Year
  Sex: Male

DRUGS (1)
  1. NEULASTA [Suspect]
     Active Substance: PEGFILGRASTIM
     Indication: Prophylaxis
     Dosage: UNK, AFTER CHEMO
     Route: 065

REACTIONS (4)
  - Product use issue [Unknown]
  - Product communication issue [Unknown]
  - Drug dose omission by device [Unknown]
  - Night sweats [Unknown]

NARRATIVE: CASE EVENT DATE: 20251108
